FAERS Safety Report 5532210-4 (Version None)
Quarter: 2007Q4

REPORT INFORMATION
  Report Type: 
  Country: None (occurrence: None)
  Receive Date: 20071128
  Receipt Date: 20071120
  Transmission Date: 20080405
  Serious: Yes (Death, Hospitalization)
  Sender: FDA-Public Use
  Company Number: 2007SP022923

PATIENT
  Age: 61 Year
  Sex: Male
  Weight: 72 kg

DRUGS (5)
  1. PEG-INTRON [Suspect]
     Indication: HEPATITIS C
     Dosage: 80 MCG; QW; SC
     Route: 058
     Dates: start: 20070905, end: 20071025
  2. RIBAVIRIN [Suspect]
     Indication: HEPATITIS C
     Dosage: 500 MG; BID; PO
     Route: 048
     Dates: start: 20070905, end: 20071025
  3. ESPIRONOLACTONA [Concomitant]
  4. PROPRANOLOL [Concomitant]
  5. FOLIC ACID [Concomitant]

REACTIONS (8)
  - ABDOMINAL PAIN LOWER [None]
  - ANAEMIA [None]
  - ASCITES [None]
  - CHOLELITHIASIS [None]
  - DYSURIA [None]
  - HYPOTENSION [None]
  - MULTI-ORGAN FAILURE [None]
  - UROSEPSIS [None]
